FAERS Safety Report 11691445 (Version 1)
Quarter: 2015Q4

REPORT INFORMATION
  Report Type: Spontaneous
  Country: IT (occurrence: IT)
  Receive Date: 20151102
  Receipt Date: 20151102
  Transmission Date: 20160304
  Serious: Yes (Hospitalization)
  Sender: FDA-Public Use
  Company Number: ALCN2012IT005722

PATIENT
  Age: 63 Year
  Sex: Female

DRUGS (4)
  1. NETILDEX [Concomitant]
     Active Substance: DEXAMETHASONE
     Indication: SURGERY
     Dosage: UNK
     Route: 047
     Dates: start: 20121116, end: 20121118
  2. VIGAMOX [Suspect]
     Active Substance: MOXIFLOXACIN HYDROCHLORIDE
     Indication: ANTIBIOTIC PROPHYLAXIS
     Dosage: 1 GTT TID
     Route: 047
     Dates: start: 20121118, end: 20121118
  3. VOLTAREN [Suspect]
     Active Substance: DICLOFENAC SODIUM
     Indication: POSTOPERATIVE CARE
     Dosage: 1 GTT TID
     Route: 047
     Dates: start: 20121118, end: 20121118
  4. PENSULVIT SIFI [Concomitant]
     Indication: SURGERY
     Dosage: UNK
     Route: 047
     Dates: start: 20121116, end: 20121118

REACTIONS (4)
  - Palpitations [Recovered/Resolved]
  - Malaise [Recovered/Resolved]
  - Chest discomfort [Recovered/Resolved]
  - Tremor [Recovered/Resolved]

NARRATIVE: CASE EVENT DATE: 20121118
